FAERS Safety Report 9408143 (Version 2)
Quarter: 2013Q3

REPORT INFORMATION
  Report Type: Spontaneous
  Country: US (occurrence: US)
  Receive Date: 20130718
  Receipt Date: 20130723
  Transmission Date: 20140515
  Serious: Yes (Death)
  Sender: FDA-Public Use
  Company Number: US-PFIZER INC-2013208784

PATIENT
  Age: 9 Month
  Sex: Male

DRUGS (2)
  1. ZOSYN [Suspect]
  2. VANCOMYCIN HCL [Suspect]

REACTIONS (3)
  - Pneumonia necrotising [Fatal]
  - Acute respiratory distress syndrome [Fatal]
  - Electrocardiogram T wave abnormal [Fatal]
